FAERS Safety Report 25184687 (Version 2)
Quarter: 2025Q2

REPORT INFORMATION
  Report Type: Spontaneous
  Country: US (occurrence: US)
  Receive Date: 20250410
  Receipt Date: 20250422
  Transmission Date: 20250717
  Serious: Yes (Hospitalization, Other)
  Sender: SANOFI AVENTIS
  Company Number: US-MLMSERVICE-20250331-PI462084-00123-2

PATIENT
  Age: 53 Year
  Sex: Female

DRUGS (16)
  1. DOCETAXEL [Interacting]
     Active Substance: DOCETAXEL
     Indication: Hormone receptor positive breast cancer
     Dosage: 75 MG/M2, Q3W (INFUSION)
  2. DOCETAXEL [Interacting]
     Active Substance: DOCETAXEL
     Indication: HER2 positive breast cancer
  3. DOCETAXEL [Interacting]
     Active Substance: DOCETAXEL
     Indication: Invasive ductal breast carcinoma
  4. CARBOPLATIN [Interacting]
     Active Substance: CARBOPLATIN
     Indication: Hormone receptor positive breast cancer
     Dosage: UNK, Q3W AREA UNDER THE CURVE (AUC) OF 6
  5. CARBOPLATIN [Interacting]
     Active Substance: CARBOPLATIN
     Indication: HER2 positive breast cancer
  6. CARBOPLATIN [Interacting]
     Active Substance: CARBOPLATIN
     Indication: Invasive ductal breast carcinoma
  7. TRASTUZUMAB [Interacting]
     Active Substance: TRASTUZUMAB
     Indication: Hormone receptor positive breast cancer
  8. TRASTUZUMAB [Interacting]
     Active Substance: TRASTUZUMAB
     Indication: HER2 positive breast cancer
     Dosage: 6 MG/KG, Q3W
  9. TRASTUZUMAB [Interacting]
     Active Substance: TRASTUZUMAB
     Indication: Invasive ductal breast carcinoma
  10. PERTUZUMAB [Interacting]
     Active Substance: PERTUZUMAB
     Indication: Hormone receptor positive breast cancer
  11. PERTUZUMAB [Interacting]
     Active Substance: PERTUZUMAB
     Indication: HER2 positive breast cancer
     Dosage: 420 MG/KG, Q3W
  12. PERTUZUMAB [Interacting]
     Active Substance: PERTUZUMAB
     Indication: Invasive ductal breast carcinoma
  13. APREPITANT [Concomitant]
     Active Substance: APREPITANT
     Indication: Premedication
  14. DEXAMETHASONE [Concomitant]
     Active Substance: DEXAMETHASONE
     Indication: Premedication
  15. PALONOSETRON [Concomitant]
     Active Substance: PALONOSETRON
     Indication: Premedication
  16. PEGFILGRASTIM [Concomitant]
     Active Substance: PEGFILGRASTIM

REACTIONS (5)
  - Cystitis haemorrhagic [Recovered/Resolved]
  - Abdominal discomfort [Recovered/Resolved]
  - Proteinuria [Recovered/Resolved]
  - Haematuria [Recovered/Resolved]
  - Drug interaction [Recovered/Resolved]
